FAERS Safety Report 15548262 (Version 1)
Quarter: 2018Q4

REPORT INFORMATION
  Report Type: Spontaneous
  Country: US (occurrence: US)
  Receive Date: 20181024
  Receipt Date: 20181024
  Transmission Date: 20190205
  Serious: No
  Sender: FDA-Public Use
  Company Number: US-009507513-1810USA010152

PATIENT
  Age: 74 Year
  Sex: Female

DRUGS (1)
  1. BELSOMRA [Suspect]
     Active Substance: SUVOREXANT
     Indication: INSOMNIA
     Dosage: 1X 5 MG, DAILY
     Route: 048
     Dates: start: 201710

REACTIONS (1)
  - Drug ineffective [Not Recovered/Not Resolved]
